FAERS Safety Report 10256953 (Version 1)
Quarter: 2014Q2

REPORT INFORMATION
  Report Type: Spontaneous
  Country: US (occurrence: US)
  Receive Date: 20140625
  Receipt Date: 20140625
  Transmission Date: 20141212
  Serious: Yes (Death)
  Sender: FDA-Public Use
  Company Number: US-BEH-2014043286

PATIENT
  Age: 71 Year
  Sex: Female

DRUGS (1)
  1. ZEMAIRA [Suspect]

REACTIONS (1)
  - Death [Fatal]
